FAERS Safety Report 8336201-X (Version None)
Quarter: 2012Q2

REPORT INFORMATION
  Report Type: 
  Country: None (occurrence: None)
  Receive Date: 20120501
  Receipt Date: 20120416
  Transmission Date: 20120825
  Serious: Yes (Other)
  Sender: FDA-Public Use
  Company Number: 20120248

PATIENT
  Age: 45 Year
  Sex: Male

DRUGS (3)
  1. LEVETIRACETAM [Suspect]
     Indication: CONVULSION PROPHYLAXIS
     Dosage: 500 MG/2X DAY: 3000 MG./DAY UNKNOWN
  2. DEXAMETHASONE SODIUM PHOSPHATE INJECTION, USP (4901-25) (DEXAMETHASONE [Concomitant]
  3. TEMOZOLOMIDE, UNKNOWN UNKNOWN UNK / UNK [Concomitant]

REACTIONS (2)
  - NAUSEA [None]
  - TUBULOINTERSTITIAL NEPHRITIS [None]
